FAERS Safety Report 10655444 (Version 2)
Quarter: 2015Q1

REPORT INFORMATION
  Report Type: Spontaneous
  Country: US (occurrence: US)
  Receive Date: 20141216
  Receipt Date: 20150120
  Transmission Date: 20150720
  Serious: No
  Sender: FDA-Public Use
  Company Number: US-GLAXOSMITHKLINE-US2014GSK036180

PATIENT
  Sex: Female

DRUGS (1)
  1. TYKERB [Suspect]
     Active Substance: LAPATINIB DITOSYLATE
     Indication: BREAST CANCER
     Dosage: 1250 MG, QD
     Dates: start: 20140923

REACTIONS (9)
  - Diarrhoea [Unknown]
  - Constipation [Unknown]
  - Cheilitis [Unknown]
  - Skin lesion [Unknown]
  - Epistaxis [Unknown]
  - Burning sensation [Unknown]
  - Fatigue [Unknown]
  - Nausea [Unknown]
  - Feeling cold [Unknown]
